FAERS Safety Report 18499024 (Version 1)
Quarter: 2020Q4

REPORT INFORMATION
  Report Type: Spontaneous
  Country: US (occurrence: US)
  Receive Date: 20201113
  Receipt Date: 20201113
  Transmission Date: 20210114
  Serious: Yes (Other)
  Sender: FDA-Public Use
  Company Number: US-SUN PHARMACEUTICAL INDUSTRIES LTD-2020R1-267586

PATIENT
  Age: 80 Year
  Sex: Female

DRUGS (4)
  1. PREDNISONE. [Suspect]
     Active Substance: PREDNISONE
     Indication: NODULAR MELANOMA
     Dosage: 40 MILLIGRAM, DAILY
     Route: 048
  2. PREDNISONE. [Suspect]
     Active Substance: PREDNISONE
     Indication: METASTASES TO LUNG
  3. INFLIXIMAB [Concomitant]
     Active Substance: INFLIXIMAB
     Indication: NODULAR MELANOMA
     Dosage: 5 MILLIGRAM/KILOGRAM, EVERY 2 WK
     Route: 065
  4. INFLIXIMAB [Concomitant]
     Active Substance: INFLIXIMAB
     Indication: METASTASES TO LUNG

REACTIONS (5)
  - Agitation [Unknown]
  - Blood glucose decreased [Unknown]
  - Dysphonia [Unknown]
  - Symptom recurrence [Unknown]
  - Pharyngeal swelling [Unknown]
